FAERS Safety Report 5545405-0 (Version None)
Quarter: 2007Q4

REPORT INFORMATION
  Report Type: 
  Country: None (occurrence: None)
  Receive Date: 20071211
  Receipt Date: 20071204
  Transmission Date: 20080405
  Serious: Yes (Death)
  Sender: FDA-Public Use
  Company Number: TR-ELI_LILLY_AND_COMPANY-TR200712000970

PATIENT
  Age: 76 Year
  Sex: Female

DRUGS (3)
  1. ZYPREXA [Suspect]
     Indication: MAJOR DEPRESSION
     Dosage: UNK UNK, 2/D
     Route: 030
  2. CIPRALEX [Concomitant]
  3. ATIVAN [Concomitant]
     Dosage: 2 MG/DAY

REACTIONS (1)
  - DEATH [None]
